FAERS Safety Report 8371241 (Version 3)
Quarter: 2012Q4

REPORT INFORMATION
  Report Type: Report from Study
  Country: US (occurrence: US)
  Receive Date: 20120129
  Receipt Date: 20121016
  Transmission Date: 20130627
  Serious: Yes (Hospitalization, Other)
  Sender: FDA-Public Use
  Company Number: US-ABBOTT-11P-163-0873788-00

PATIENT
  Age: 73 None
  Sex: Male
  Weight: 93.52 kg

DRUGS (26)
  1. HUMIRA 40 MG/0.8 ML PEN [Suspect]
     Indication: RHEUMATOID ARTHRITIS
     Dates: start: 2009, end: 201106
  2. HUMIRA 40 MG/0.8 ML PEN [Suspect]
     Dates: start: 201108
  3. EXELON [Suspect]
     Indication: DEMENTIA
  4. CENTRUM SILVER [Concomitant]
     Indication: VITAMIN SUPPLEMENTATION
     Dosage: Daily
  5. ASPIRIN [Concomitant]
     Indication: CEREBROVASCULAR ACCIDENT
  6. FOLGARD [Concomitant]
     Indication: VITAMIN SUPPLEMENTATION
     Dosage: Once daily
  7. TOPROL [Concomitant]
     Indication: HYPERTENSION
     Dosage: Daily
  8. ACTOPLUS MET [Concomitant]
     Indication: TYPE 2 DIABETES MELLITUS
     Dosage: 15mg/500mg BID
  9. LEVEMIR [Concomitant]
     Indication: TYPE 2 DIABETES MELLITUS
  10. HUMALOG [Concomitant]
     Indication: TYPE 2 DIABETES MELLITUS
     Dosage: 75/25 daily
  11. PREDNISONE [Concomitant]
     Indication: RHEUMATOID ARTHRITIS
  12. ATELVIA [Concomitant]
     Indication: BONE DENSITY ABNORMAL
     Dosage: Once weekly
  13. VITAMIN E [Concomitant]
     Indication: VITAMIN SUPPLEMENTATION
     Dosage: Daily
  14. VITAMIN B12 [Concomitant]
     Indication: VITAMIN SUPPLEMENTATION
     Dosage: Daily
  15. VITAMIN B6 [Concomitant]
     Indication: VITAMIN SUPPLEMENTATION
     Dosage: Daily
  16. VITAMIN B COMPLEX [Concomitant]
     Indication: VITAMIN SUPPLEMENTATION
     Dosage: Daily
  17. FISH OIL [Concomitant]
     Indication: SUPPLEMENTATION THERAPY
     Dosage: Daily
  18. ADVAIR [Concomitant]
     Indication: EMPHYSEMA
     Dosage: 250/50 BID
  19. ADVAIR [Concomitant]
     Indication: INTERSTITIAL LUNG DISEASE
  20. SPIRIVA [Concomitant]
     Indication: EMPHYSEMA
     Dosage: Daily
  21. SPIRIVA [Concomitant]
     Indication: INTERSTITIAL LUNG DISEASE
  22. DIOVAN HCT [Concomitant]
     Indication: HYPERTENSION
     Dosage: Daily
  23. EXELON [Concomitant]
     Indication: PRODUCT USED FOR UNKNOWN INDICATION
  24. METOPROL [Concomitant]
     Indication: HYPERTENSION
  25. NOVOLOG [Concomitant]
     Indication: DIABETES MELLITUS
  26. LEXAPRO [Concomitant]
     Indication: RHEUMATOID ARTHRITIS

REACTIONS (8)
  - Interstitial lung disease [Recovered/Resolved]
  - Interstitial lung disease [Unknown]
  - Dizziness [Recovered/Resolved]
  - Asthenia [Not Recovered/Not Resolved]
  - Muscular weakness [Not Recovered/Not Resolved]
  - Hypertension [Not Recovered/Not Resolved]
  - Cough [Recovered/Resolved]
  - Chronic obstructive pulmonary disease [Not Recovered/Not Resolved]
